FAERS Safety Report 18042509 (Version 1)
Quarter: 2020Q3

REPORT INFORMATION
  Report Type: Spontaneous
  Country: US (occurrence: US)
  Receive Date: 20200720
  Receipt Date: 20200720
  Transmission Date: 20201103
  Serious: No
  Sender: FDA-Public Use
  Company Number: US-BAYER-2020-145586

PATIENT
  Sex: Female

DRUGS (1)
  1. CLARITIN [Suspect]
     Active Substance: LORATADINE
     Indication: RASH
     Dosage: 1 DF
     Route: 048
     Dates: start: 20200710, end: 20200711

REACTIONS (3)
  - Off label use [Unknown]
  - Rash [Recovered/Resolved]
  - Product use in unapproved indication [Unknown]
